FAERS Safety Report 24281270 (Version 1)
Quarter: 2024Q3

REPORT INFORMATION
  Report Type: Other
  Country: CA (occurrence: CA)
  Receive Date: 20240904
  Receipt Date: 20240904
  Transmission Date: 20241017
  Serious: Yes (Other)
  Sender: APOTEX
  Company Number: CA-APOTEX-2024AP010026

PATIENT
  Age: 68 Year
  Sex: Male

DRUGS (5)
  1. METFORMIN [Suspect]
     Active Substance: METFORMIN HYDROCHLORIDE
     Indication: Product used for unknown indication
     Dosage: UNK
     Route: 065
  2. XTANDI [Suspect]
     Active Substance: ENZALUTAMIDE
     Indication: Prostatic specific antigen increased
     Dosage: UNK
     Route: 065
  3. ELIGARD [Suspect]
     Active Substance: LEUPROLIDE ACETATE
     Indication: Prostate cancer
     Dosage: 22.5 MILLIGRAM (1 EVERY 3 MONTHS)
     Route: 058
  4. ELIGARD [Suspect]
     Active Substance: LEUPROLIDE ACETATE
     Dosage: UNK (1 EVERY 3 MONTHS)
     Route: 058
  5. ELIGARD [Suspect]
     Active Substance: LEUPROLIDE ACETATE
     Dosage: DOSE: 22.5 UNIT UNSPECIFIED (1 EVERY 3 MONTHS)
     Route: 058

REACTIONS (5)
  - Blood pressure fluctuation [Unknown]
  - Hot flush [Unknown]
  - Hypertension [Unknown]
  - Injection site mass [Unknown]
  - Weight decreased [Unknown]
